FAERS Safety Report 14245031 (Version 2)
Quarter: 2021Q3

REPORT INFORMATION
  Report Type: Spontaneous
  Country: CA (occurrence: CA)
  Receive Date: 20171202
  Receipt Date: 20210705
  Transmission Date: 20211014
  Serious: Yes (Other)
  Sender: FDA-Public Use
  Company Number: CA-ROCHE-2028732

PATIENT
  Age: 36 Year
  Sex: Male

DRUGS (16)
  1. RITUXIMAB. [Suspect]
     Active Substance: RITUXIMAB
     Indication: THROMBOTIC THROMBOCYTOPENIC PURPURA
     Route: 065
  2. BORTEZOMIB. [Suspect]
     Active Substance: BORTEZOMIB
     Route: 042
  3. PROCYTOX [Suspect]
     Active Substance: CYCLOPHOSPHAMIDE
     Route: 042
  4. PROCYTOX [Suspect]
     Active Substance: CYCLOPHOSPHAMIDE
     Route: 065
  5. PROCYTOX [Suspect]
     Active Substance: CYCLOPHOSPHAMIDE
     Route: 042
  6. RITUXIMAB. [Suspect]
     Active Substance: RITUXIMAB
     Indication: THROMBOTIC THROMBOCYTOPENIC PURPURA
     Route: 042
  7. METHYLPREDNISOLONE. [Suspect]
     Active Substance: METHYLPREDNISOLONE
     Indication: THROMBOTIC THROMBOCYTOPENIC PURPURA
     Route: 065
  8. RITUXIMAB. [Suspect]
     Active Substance: RITUXIMAB
     Route: 065
  9. BORTEZOMIB. [Suspect]
     Active Substance: BORTEZOMIB
     Route: 042
  10. METHYLPREDNISOLONE SODIUM SUCCINATE. [Suspect]
     Active Substance: METHYLPREDNISOLONE SODIUM SUCCINATE
     Indication: THROMBOTIC THROMBOCYTOPENIC PURPURA
     Route: 065
  11. BORTEZOMIB. [Suspect]
     Active Substance: BORTEZOMIB
     Route: 042
  12. RITUXIMAB. [Suspect]
     Active Substance: RITUXIMAB
     Route: 042
  13. RITUXIMAB. [Suspect]
     Active Substance: RITUXIMAB
     Route: 042
  14. CICLOSPORIN [Suspect]
     Active Substance: CYCLOSPORINE
     Indication: IMMUNOSUPPRESSANT DRUG THERAPY
     Route: 048
  15. BORTEZOMIB. [Suspect]
     Active Substance: BORTEZOMIB
     Indication: THROMBOTIC THROMBOCYTOPENIC PURPURA
     Route: 042
  16. PROCYTOX [Suspect]
     Active Substance: CYCLOPHOSPHAMIDE
     Indication: THROMBOTIC THROMBOCYTOPENIC PURPURA
     Route: 065

REACTIONS (11)
  - Empyema [Unknown]
  - Therapy non-responder [Unknown]
  - Enterococcal infection [Unknown]
  - Pneumonia klebsiella [Unknown]
  - Staphylococcal infection [Unknown]
  - Brain oedema [Unknown]
  - Abdominal abscess [Unknown]
  - Hemianopia [Unknown]
  - Candida infection [Unknown]
  - Cerebral infarction [Unknown]
  - Device related sepsis [Unknown]
